FAERS Safety Report 7478230-4 (Version None)
Quarter: 2011Q2

REPORT INFORMATION
  Report Type: 
  Country: None (occurrence: None)
  Receive Date: 20110513
  Receipt Date: 20110510
  Transmission Date: 20111010
  Serious: Yes (Death)
  Sender: FDA-Public Use
  Company Number: PHHY2011US24451

PATIENT
  Sex: Male
  Weight: 45.351 kg

DRUGS (2)
  1. EXJADE [Suspect]
     Dosage: 500 MG, DAILY
     Route: 048
     Dates: start: 20100914, end: 20101014
  2. EXJADE [Suspect]
     Indication: NEOPLASM
     Dosage: 2000 MG, QD
     Route: 048
     Dates: start: 20090828

REACTIONS (3)
  - NEOPLASM MALIGNANT [None]
  - SEPSIS [None]
  - GASTROINTESTINAL HAEMORRHAGE [None]
